FAERS Safety Report 8402140-9 (Version None)
Quarter: 2012Q2

REPORT INFORMATION
  Report Type: 
  Country: None (occurrence: None)
  Receive Date: 20120601
  Receipt Date: 20120529
  Transmission Date: 20120825
  Serious: Yes (Hospitalization)
  Sender: FDA-Public Use
  Company Number: CN-ELI_LILLY_AND_COMPANY-CN201108008723

PATIENT
  Sex: Female
  Weight: 50 kg

DRUGS (7)
  1. RADIATION [Suspect]
     Indication: NON-SMALL CELL LUNG CANCER STAGE III
     Dosage: 66 GY (33F), 5 F PER WEEK
     Dates: start: 20110602, end: 20110719
  2. PEMETREXED [Suspect]
     Indication: NON-SMALL CELL LUNG CANCER STAGE III
     Dosage: 500 MG/M2, EVERY 3 WEEKS
     Route: 042
     Dates: start: 20110602, end: 20110630
  3. CISPLATIN [Suspect]
     Indication: NON-SMALL CELL LUNG CANCER STAGE III
     Dosage: 75 MG/M2, EVERY 3 WEEKS
     Route: 042
     Dates: start: 20110602, end: 20110630
  4. PEMETREXED [Suspect]
     Dosage: 500 MG/M2, EVERY 3 WEEKS
     Route: 042
     Dates: start: 20110810
  5. VITAMIN B-12 [Concomitant]
     Indication: PROPHYLAXIS
     Dosage: UNK
     Dates: start: 20110527
  6. FOLIC ACID [Concomitant]
     Indication: PROPHYLAXIS
     Dosage: UNK
     Dates: start: 20110527
  7. DEXAMETHASONE [Concomitant]
     Indication: PROPHYLAXIS
     Dosage: UNK
     Dates: start: 20110601

REACTIONS (1)
  - RADIATION PNEUMONITIS [None]
